FAERS Safety Report 7007954 (Version 5)
Quarter: 2013Q1

REPORT INFORMATION
  Report Type: Spontaneous
  Country: US (occurrence: US)
  Receive Date: 20090601
  Receipt Date: 20130218
  Transmission Date: 20140127
  Serious: Yes (Hospitalization, Other)
  Sender: FDA-Public Use
  Company Number: US-BIOGENIDEC-2009BI015608

PATIENT
  Age: 39 Year
  Sex: Female

DRUGS (1)
  1. AVONEX [Suspect]
     Indication: MULTIPLE SCLEROSIS
     Route: 030
     Dates: start: 2003, end: 200905

REACTIONS (4)
  - Multiple sclerosis [Unknown]
  - Invasive ductal breast carcinoma [Recovered/Resolved]
  - Convulsion [Recovered/Resolved]
  - Intervertebral disc protrusion [Recovered/Resolved]
